FAERS Safety Report 5158302-X (Version None)
Quarter: 2006Q4

REPORT INFORMATION
  Report Type: 
  Country: None (occurrence: None)
  Receive Date: 20061121
  Receipt Date: 20061121
  Transmission Date: 20070319
  Serious: Yes (Death, Hospitalization)
  Sender: FDA-Public Use
  Company Number: None

PATIENT
  Age: 62 Year
  Sex: Male

DRUGS (6)
  1. ASPARAGINASE [Suspect]
     Dosage: 20,000 UNITS DAILY TIMES 7 DAYS IV
     Route: 042
  2. INSULIN [Concomitant]
  3. GLUCOPHAGE [Concomitant]
  4. ATENOLOL [Concomitant]
  5. COUMADIN [Concomitant]
  6. LISINOPRIL [Concomitant]

REACTIONS (2)
  - HYPERGLYCAEMIA [None]
  - HYPEROSMOLAR STATE [None]
